FAERS Safety Report 18624521 (Version 2)
Quarter: 2025Q3

REPORT INFORMATION
  Report Type: Spontaneous
  Country: US (occurrence: US)
  Receive Date: 20201216
  Receipt Date: 20250725
  Transmission Date: 20251020
  Serious: Yes (Death, Hospitalization, Disabling, Other)
  Sender: PURDUE
  Company Number: US-PURDUE-USA-2020-0184267

PATIENT
  Sex: Male

DRUGS (4)
  1. OXYCONTIN [Suspect]
     Active Substance: OXYCODONE HYDROCHLORIDE
     Indication: Pain
     Route: 048
  2. OXYCODONE HYDROCHLORIDE [Suspect]
     Active Substance: OXYCODONE HYDROCHLORIDE
     Indication: Product used for unknown indication
     Route: 065
  3. DILAUDID [Suspect]
     Active Substance: HYDROMORPHONE HYDROCHLORIDE
     Indication: Pain
     Route: 048
  4. FENTANYL [Suspect]
     Active Substance: FENTANYL
     Indication: Product used for unknown indication
     Route: 065

REACTIONS (4)
  - Multiple organ dysfunction syndrome [Fatal]
  - Drug dependence [Fatal]
  - Skin ulcer [Unknown]
  - Bedridden [Unknown]

NARRATIVE: CASE EVENT DATE: 20130515
